FAERS Safety Report 23179955 (Version 1)
Quarter: 2023Q4

REPORT INFORMATION
  Report Type: Spontaneous
  Country: US (occurrence: US)
  Receive Date: 20231114
  Receipt Date: 20231114
  Transmission Date: 20240110
  Serious: Yes (Other)
  Sender: FDA-Public Use
  Company Number: US-ALKEM LABORATORIES LIMITED-US-ALKEM-2023-13309

PATIENT
  Age: 5 Decade
  Sex: Female

DRUGS (12)
  1. OXYCODONE HYDROCHLORIDE [Suspect]
     Active Substance: OXYCODONE HYDROCHLORIDE
     Indication: Axillary pain
     Dosage: 15 MILLIGRAM (EVERY 4 HOURS AS NEEDED) IMMEDIATE RELEASE, PRN
     Route: 065
  2. OXYCODONE HYDROCHLORIDE [Suspect]
     Active Substance: OXYCODONE HYDROCHLORIDE
     Indication: Neck pain
     Dosage: 36 MILLIGRAM, TID (EXTENDED-RELEASE)
     Route: 065
  3. OXYCODONE HYDROCHLORIDE [Suspect]
     Active Substance: OXYCODONE HYDROCHLORIDE
     Indication: Back pain
  4. METHADONE HYDROCHLORIDE [Suspect]
     Active Substance: METHADONE HYDROCHLORIDE
     Indication: Axillary pain
     Dosage: 10 MILLIGRAM, TID
     Route: 065
  5. METHADONE HYDROCHLORIDE [Suspect]
     Active Substance: METHADONE HYDROCHLORIDE
     Indication: Neck pain
     Dosage: 10 MILLIGRAM, TID (RESTARTED DOSE)
     Route: 065
  6. METHADONE HYDROCHLORIDE [Suspect]
     Active Substance: METHADONE HYDROCHLORIDE
     Indication: Back pain
  7. DULOXETINE [Concomitant]
     Active Substance: DULOXETINE
     Indication: Axillary pain
     Dosage: 60 MILLIGRAM, QD
     Route: 065
  8. DULOXETINE [Concomitant]
     Active Substance: DULOXETINE
     Indication: Back pain
  9. DULOXETINE [Concomitant]
     Active Substance: DULOXETINE
     Indication: Neck pain
  10. GABAPENTIN [Concomitant]
     Active Substance: GABAPENTIN
     Indication: Axillary pain
     Dosage: 300 MILLIGRAM, TID
     Route: 065
  11. GABAPENTIN [Concomitant]
     Active Substance: GABAPENTIN
     Indication: Back pain
  12. GABAPENTIN [Concomitant]
     Active Substance: GABAPENTIN
     Indication: Neck pain

REACTIONS (3)
  - Neurotoxicity [Recovered/Resolved]
  - Electrocardiogram QT prolonged [Recovering/Resolving]
  - Pain [Unknown]
